FAERS Safety Report 8882162 (Version 3)
Quarter: 2012Q4

REPORT INFORMATION
  Report Type: Report from Study
  Country: US (occurrence: US)
  Receive Date: 20121102
  Receipt Date: 20121206
  Transmission Date: 20130627
  Serious: Yes (Death, Hospitalization, Other)
  Sender: FDA-Public Use
  Company Number: US-SANOFI-AVENTIS-2012SA077554

PATIENT
  Age: 74 Year
  Sex: Male
  Weight: 78 kg

DRUGS (19)
  1. DOCETAXEL [Suspect]
     Indication: RENAL CANCER
     Route: 041
     Dates: start: 20120905, end: 20120905
  2. DOCETAXEL [Suspect]
     Indication: PROSTATE CANCER
     Route: 041
     Dates: start: 20120905, end: 20120905
  3. DOCETAXEL [Suspect]
     Indication: RENAL CANCER
     Route: 041
     Dates: start: 20120925, end: 20120925
  4. DOCETAXEL [Suspect]
     Indication: PROSTATE CANCER
     Route: 041
     Dates: start: 20120925, end: 20120925
  5. INVESTIGATIONAL DRUG [Suspect]
     Indication: RENAL CANCER
     Route: 042
     Dates: start: 20120905, end: 20120905
  6. INVESTIGATIONAL DRUG [Suspect]
     Indication: PROSTATE CANCER
     Route: 042
     Dates: start: 20120905, end: 20120905
  7. INVESTIGATIONAL DRUG [Suspect]
     Indication: RENAL CANCER
     Route: 042
     Dates: start: 20120912, end: 20120912
  8. INVESTIGATIONAL DRUG [Suspect]
     Indication: PROSTATE CANCER
     Route: 042
     Dates: start: 20120912, end: 20120912
  9. ASPIRIN [Concomitant]
     Dates: start: 1997, end: 20121024
  10. FLUOXETINE [Concomitant]
     Dates: end: 20121024
  11. FOSAMAX [Concomitant]
     Dates: start: 2010, end: 20120929
  12. GABAPENTIN [Concomitant]
     Dates: start: 2010, end: 20121024
  13. HYZAAR [Concomitant]
     Dates: start: 1997, end: 20121024
  14. ATORVASTATIN CALCIUM [Concomitant]
     Dates: start: 1997, end: 20121024
  15. LOPRESSOR [Concomitant]
     Dates: start: 1997, end: 20121024
  16. RANITIDINE [Concomitant]
     Dates: start: 1997, end: 20120929
  17. DEXAMETHASONE [Concomitant]
     Dates: start: 20120924, end: 20120929
  18. ONDANSETRON [Concomitant]
     Dates: start: 20120720, end: 20121024
  19. PROCHLORPERAZINE [Concomitant]
     Dates: start: 20120720, end: 20121024

REACTIONS (12)
  - Septic shock [Fatal]
  - Haematuria [Recovered/Resolved]
  - Anaemia [Recovered/Resolved]
  - Lung infiltration [Not Recovered/Not Resolved]
  - Febrile neutropenia [Recovered/Resolved]
  - Atrial fibrillation [Not Recovered/Not Resolved]
  - Respiratory failure [Not Recovered/Not Resolved]
  - Renal tubular necrosis [Not Recovered/Not Resolved]
  - Renal failure [Not Recovered/Not Resolved]
  - Deep vein thrombosis [Not Recovered/Not Resolved]
  - Hypotension [Recovered/Resolved]
  - Blood creatinine increased [Not Recovered/Not Resolved]
